FAERS Safety Report 12185295 (Version 1)
Quarter: 2016Q1

REPORT INFORMATION
  Report Type: Spontaneous
  Country: DK (occurrence: DK)
  Receive Date: 20160316
  Receipt Date: 20160316
  Transmission Date: 20160526
  Serious: Yes (Other)
  Sender: FDA-Public Use
  Company Number: DK-PFIZER INC-2016158898

PATIENT
  Age: 62 Year
  Sex: Male
  Weight: 65 kg

DRUGS (5)
  1. PHENAZONE [Concomitant]
     Active Substance: ANTIPYRINE
     Dosage: UNK
     Dates: start: 1985
  2. CODEIN [Concomitant]
     Active Substance: CODEINE
     Dosage: UNK
     Dates: start: 1985
  3. LANSOPRAZOLE. [Suspect]
     Active Substance: LANSOPRAZOLE
     Indication: GASTRIC PH DECREASED
     Dosage: 30 MG, DAILY
     Route: 048
     Dates: start: 2012, end: 2012
  4. PANTOPRAZOLE [Suspect]
     Active Substance: PANTOPRAZOLE SODIUM
     Indication: GASTRIC PH DECREASED
     Dosage: 30 MG, UNK
     Route: 048
     Dates: start: 2012, end: 2012
  5. COFFEIN [Concomitant]
     Active Substance: CAFFEINE
     Dosage: UNK
     Dates: start: 1985

REACTIONS (2)
  - Choking sensation [Recovered/Resolved]
  - Dyspnoea [Recovered/Resolved]

NARRATIVE: CASE EVENT DATE: 2012
